FAERS Safety Report 9240772 (Version 1)
Quarter: 2013Q2

REPORT INFORMATION
  Report Type: Spontaneous
  Country: US (occurrence: US)
  Receive Date: 20130418
  Receipt Date: 20130418
  Transmission Date: 20140414
  Serious: No
  Sender: FDA-Public Use
  Company Number: US-SANOFI-AVENTIS-2013SA001130

PATIENT
  Age: 44 Year
  Sex: Male
  Weight: 98 kg

DRUGS (3)
  1. LOVENOX [Suspect]
     Indication: PULMONARY EMBOLISM
     Route: 065
     Dates: start: 20120928
  2. LOVENOX [Suspect]
     Indication: PULMONARY EMBOLISM
     Dates: start: 20121203, end: 20121226
  3. LOVENOX [Suspect]
     Indication: PULMONARY EMBOLISM

REACTIONS (3)
  - Dyspnoea [Not Recovered/Not Resolved]
  - Headache [Recovered/Resolved]
  - Drug dose omission [Unknown]
